FAERS Safety Report 7560198-3 (Version None)
Quarter: 2011Q2

REPORT INFORMATION
  Report Type: 
  Country: None (occurrence: None)
  Receive Date: 20110621
  Receipt Date: 20110613
  Transmission Date: 20111010
  Serious: Yes (Other)
  Sender: FDA-Public Use
  Company Number: B0725775A

PATIENT
  Age: 4 Decade
  Sex: Female

DRUGS (2)
  1. LAMICTAL [Suspect]
     Indication: EPILEPSY
     Route: 048
     Dates: start: 20110302, end: 20110328
  2. DEPAKENE [Concomitant]
     Route: 048
     Dates: start: 19990101

REACTIONS (11)
  - SHOCK [None]
  - LYMPHADENOPATHY [None]
  - TOXIC SKIN ERUPTION [None]
  - DYSPNOEA [None]
  - HEPATIC FUNCTION ABNORMAL [None]
  - DYSKINESIA [None]
  - POLYNEUROPATHY [None]
  - PAIN [None]
  - PYREXIA [None]
  - HUMAN HERPESVIRUS 6 INFECTION [None]
  - MUSCULOSKELETAL STIFFNESS [None]
